FAERS Safety Report 8217290-X (Version None)
Quarter: 2012Q1

REPORT INFORMATION
  Report Type: 
  Country: None (occurrence: None)
  Receive Date: 20120319
  Receipt Date: 20120313
  Transmission Date: 20120608
  Serious: No
  Sender: FDA-Public Use
  Company Number: US-PFIZER INC-2012067564

PATIENT
  Sex: Female
  Weight: 86.168 kg

DRUGS (12)
  1. LYRICA [Concomitant]
     Dosage: 150 MG, 3X/DAY
  2. ARTHROTEC [Suspect]
     Indication: SPONDYLITIS
     Dosage: 75 MG, 2X/DAY
     Dates: start: 20090101, end: 20110901
  3. NEXIUM [Concomitant]
     Dosage: UNK, DAILY
  4. PERCOCET [Concomitant]
     Dosage: 5 MG, 3X/DAY
  5. DICLOFENAC SODIUM [Concomitant]
     Dosage: 100 MG, 3X/DAY
  6. VITAMIN D [Concomitant]
     Dosage: UNK
  7. SITAGLIPTIN AND METFORMIN HYDROCHLORIDE [Concomitant]
     Indication: DIABETES MELLITUS
     Dosage: 1000/50 MG, 2X/DAY
  8. FISH OIL [Concomitant]
     Dosage: UNK
  9. CALCIUM CITRATE [Concomitant]
     Dosage: UNK
  10. LASIX [Concomitant]
     Dosage: 10 MG, DAILY
  11. LISINOPRIL [Concomitant]
     Indication: BLOOD PRESSURE ABNORMAL
     Dosage: 10 MG, DAILY
  12. ISOSORBIDE [Concomitant]
     Dosage: 10 MG, 2X/DAY

REACTIONS (1)
  - DRUG INEFFECTIVE [None]
